FAERS Safety Report 16047126 (Version 1)
Quarter: 2019Q1

REPORT INFORMATION
  Report Type: Report from Study
  Country: BR (occurrence: BR)
  Receive Date: 20190307
  Receipt Date: 20190307
  Transmission Date: 20190418
  Serious: Yes (Hospitalization)
  Sender: FDA-Public Use
  Company Number: BR-BAYER-2019-042658

PATIENT
  Age: 82 Year
  Sex: Male

DRUGS (3)
  1. NEXAVAR [Suspect]
     Active Substance: SORAFENIB
     Indication: HEPATOCELLULAR CARCINOMA
     Dosage: 800 MG, QD
     Route: 048
     Dates: start: 201902
  2. NEXAVAR [Suspect]
     Active Substance: SORAFENIB
     Indication: HEPATOCELLULAR CARCINOMA
     Dosage: 800 MG, QD
     Route: 048
     Dates: start: 20190209
  3. LEVITRA [Concomitant]
     Active Substance: VARDENAFIL HYDROCHLORIDE TRIHYDRATE
     Indication: POLYURIA
     Dosage: UNK

REACTIONS (6)
  - Food refusal [None]
  - Gastrointestinal pain [None]
  - Abdominal pain [None]
  - Diarrhoea [None]
  - Malnutrition [None]
  - Asthenia [None]

NARRATIVE: CASE EVENT DATE: 201902
